FAERS Safety Report 20147535 (Version 2)
Quarter: 2021Q4

REPORT INFORMATION
  Report Type: Report from Study
  Country: JP (occurrence: JP)
  Receive Date: 20211203
  Receipt Date: 20211218
  Transmission Date: 20220303
  Serious: Yes (Hospitalization)
  Sender: FDA-Public Use
  Company Number: JP-REGENERON PHARMACEUTICALS, INC.-2021-88281

PATIENT

DRUGS (12)
  1. CEMIPLIMAB [Suspect]
     Active Substance: CEMIPLIMAB
     Indication: Non-small cell lung cancer stage IV
     Dosage: 350 MG, Q3W
     Route: 042
     Dates: start: 20210406, end: 20210802
  2. ACETAMINOPHEN [Concomitant]
     Active Substance: ACETAMINOPHEN
     Indication: Cancer pain
     Dosage: 4000 MG, QID
     Route: 048
     Dates: start: 20210129
  3. TRAMADOL HYDROCHLORIDE [Concomitant]
     Active Substance: TRAMADOL HYDROCHLORIDE
     Indication: Cancer pain
     Dosage: 100 MG, QID
     Route: 048
     Dates: start: 20210129
  4. LOPERAMIDE HYDROCHLORIDE [Concomitant]
     Active Substance: LOPERAMIDE HYDROCHLORIDE
     Indication: Diarrhoea
     Dosage: 1 MG, AS NECESSARY
     Route: 048
     Dates: start: 20210623
  5. ZOLPIDEM TARTRATE [Concomitant]
     Active Substance: ZOLPIDEM TARTRATE
     Indication: Insomnia
     Dosage: 5 MG, AS NECESSARY
     Route: 048
     Dates: start: 20210406
  6. AMBROXOL HYDROCHLORIDE [Concomitant]
     Active Substance: AMBROXOL HYDROCHLORIDE
     Indication: Asthma
     Dosage: 15 MG, TID
     Route: 048
     Dates: start: 20210518
  7. TIOTROPIUM BROMIDE MONOHYDRATE [Concomitant]
     Active Substance: TIOTROPIUM BROMIDE MONOHYDRATE
     Indication: Emphysema
     Dosage: 2 INHALATION, QD
     Route: 055
     Dates: start: 20210624
  8. OLODATEROL HYDROCHLORIDE [Concomitant]
     Active Substance: OLODATEROL HYDROCHLORIDE
     Indication: Emphysema
     Dosage: 2 INHALATION, QD
     Route: 055
     Dates: start: 20210624
  9. CODEINE PHOSPHATE [Concomitant]
     Active Substance: CODEINE PHOSPHATE
     Indication: Emphysema
     Dosage: 2 G, AS NECESSARY
     Route: 048
     Dates: start: 20210624
  10. HYDROCORTISONE SODIUM SUCCINATE [Concomitant]
     Active Substance: HYDROCORTISONE SODIUM SUCCINATE
     Indication: Emphysema
     Dosage: 100 MG, AS NECESSARY
     Route: 042
     Dates: start: 20210624
  11. PROCATEROL HYDROCHLORIDE [Concomitant]
     Active Substance: PROCATEROL HYDROCHLORIDE
     Indication: Emphysema
     Dosage: 1 INHALATION, AS NECESSARY
     Route: 055
     Dates: start: 20210627
  12. VEEN D [Concomitant]
     Active Substance: CALCIUM CHLORIDE\DEXTROSE\POTASSIUM CHLORIDE\SODIUM ACETATE\SODIUM CHLORIDE
     Indication: Decreased appetite
     Dosage: 500 ML, OTO
     Route: 042
     Dates: start: 20210913, end: 20210913

REACTIONS (4)
  - Decreased appetite [Recovered/Resolved]
  - Cholangitis [Not Recovered/Not Resolved]
  - Drug-induced liver injury [Recovering/Resolving]
  - Hypoalbuminaemia [Recovering/Resolving]

NARRATIVE: CASE EVENT DATE: 20210921
